FAERS Safety Report 21071753 (Version 3)
Quarter: 2022Q3

REPORT INFORMATION
  Report Type: Spontaneous
  Country: CA (occurrence: CA)
  Receive Date: 20220712
  Receipt Date: 20220714
  Transmission Date: 20221027
  Serious: Yes (Life-Threatening, Hospitalization, Other)
  Sender: FDA-Public Use
  Company Number: CA-MLMSERVICE-20220701-3639384-1

PATIENT
  Age: 56 Year
  Sex: Female
  Weight: 52 kg

DRUGS (11)
  1. ATGAM [Suspect]
     Active Substance: EQUINE THYMOCYTE IMMUNE GLOBULIN
     Indication: Immunosuppressant drug therapy
     Dosage: UNK
  2. TACROLIMUS [Suspect]
     Active Substance: TACROLIMUS
     Indication: Immunosuppressant drug therapy
     Dosage: 6 MG, 2X/DAY (GOAL LEVEL 10-15)
     Route: 048
  3. MYCOPHENOLATE MOFETIL [Suspect]
     Active Substance: MYCOPHENOLATE MOFETIL
     Indication: Immunosuppressant drug therapy
     Dosage: 1 G, 2X/DAY
     Route: 048
  4. MYCOPHENOLATE MOFETIL [Suspect]
     Active Substance: MYCOPHENOLATE MOFETIL
     Dosage: 750 MG, 2X/DAY
     Route: 048
     Dates: start: 20200910, end: 20200910
  5. MYCOPHENOLATE MOFETIL [Suspect]
     Active Substance: MYCOPHENOLATE MOFETIL
     Dosage: 500 MG, 2X/DAY
     Route: 048
     Dates: start: 20200911, end: 20200923
  6. MYCOPHENOLATE MOFETIL [Suspect]
     Active Substance: MYCOPHENOLATE MOFETIL
     Dosage: 250 MG, 2X/DAY
     Route: 048
     Dates: start: 20200929, end: 20201001
  7. MYCOPHENOLATE MOFETIL [Suspect]
     Active Substance: MYCOPHENOLATE MOFETIL
     Dosage: 250 MG, 2X/DAY
     Route: 048
     Dates: start: 20201007, end: 20201009
  8. MYCOPHENOLATE MOFETIL [Suspect]
     Active Substance: MYCOPHENOLATE MOFETIL
     Dosage: 500 MG, 2X/DAY
     Route: 048
     Dates: start: 20201010
  9. PREDNISONE [Suspect]
     Active Substance: PREDNISONE
     Indication: Immunosuppressant drug therapy
     Dosage: 25 MG, DAILY (TO BE TAPERED BY 09 DECEMBER)
     Route: 048
  10. PREDNISONE [Suspect]
     Active Substance: PREDNISONE
     Dosage: 20 MG, DAILY
     Route: 048
     Dates: start: 202009, end: 202009
  11. PREDNISONE [Suspect]
     Active Substance: PREDNISONE
     Dosage: 17.5 MG, DAILY
     Route: 048
     Dates: start: 20200904, end: 20200922

REACTIONS (3)
  - COVID-19 pneumonia [Recovered/Resolved]
  - Pneumonia bacterial [Recovered/Resolved]
  - SARS-CoV-2 RNA increased [Recovered/Resolved]
